FAERS Safety Report 6148078-1 (Version None)
Quarter: 2009Q2

REPORT INFORMATION
  Report Type: 
  Country: None (occurrence: None)
  Receive Date: 20090408
  Receipt Date: 20090331
  Transmission Date: 20091009
  Serious: Yes (Hospitalization)
  Sender: FDA-Public Use
  Company Number: B0567833A

PATIENT
  Sex: Female

DRUGS (10)
  1. DEROXAT [Suspect]
     Indication: DEPRESSION
     Route: 065
  2. ART 50 [Suspect]
     Route: 065
  3. MIANSERINE [Concomitant]
     Indication: DEPRESSION
     Dosage: 30MG PER DAY
     Route: 048
     Dates: start: 20070101, end: 20081202
  4. NEXIUM [Concomitant]
     Indication: PROPHYLAXIS
     Dosage: 40MG PER DAY
     Route: 048
     Dates: start: 20070101, end: 20081202
  5. TOPALGIC (FRANCE) [Concomitant]
     Indication: PAIN
     Dosage: 200MG TWICE PER DAY
     Route: 048
     Dates: start: 20070101, end: 20081202
  6. LORAZEPAM [Concomitant]
     Indication: PAIN
     Dosage: 2.5MG PER DAY
     Route: 048
     Dates: start: 20070101, end: 20081202
  7. ZOLPIDEM [Concomitant]
     Indication: INSOMNIA
     Dosage: 1UNIT PER DAY
     Route: 048
     Dates: start: 20070101, end: 20081202
  8. FORLAX [Concomitant]
     Indication: DRUG USE FOR UNKNOWN INDICATION
     Route: 065
  9. GAVISCON [Concomitant]
     Indication: DRUG USE FOR UNKNOWN INDICATION
     Route: 065
  10. DAFALGAN [Concomitant]
     Indication: DRUG USE FOR UNKNOWN INDICATION
     Route: 065

REACTIONS (4)
  - CHOLESTASIS [None]
  - DIARRHOEA [None]
  - HEPATOCELLULAR INJURY [None]
  - VOMITING [None]
